FAERS Safety Report 21843050 (Version 1)
Quarter: 2023Q1

REPORT INFORMATION
  Report Type: Spontaneous
  Country: EG (occurrence: EG)
  Receive Date: 20230110
  Receipt Date: 20230110
  Transmission Date: 20230418
  Serious: Yes (Other)
  Sender: FDA-Public Use
  Company Number: EG-PFIZER INC-PV202300002536

PATIENT
  Age: 55 Year
  Sex: Female

DRUGS (1)
  1. SUTENT [Suspect]
     Active Substance: SUNITINIB MALATE
     Indication: Gastrointestinal stromal tumour
     Dosage: 50 MG, CYCLIC [ONE CAP PER DAY FOR 4 WEEKS ON AND 2 WEEKS OFF]
     Route: 048
     Dates: start: 20220927

REACTIONS (4)
  - Immunodeficiency [Unknown]
  - Neoplasm progression [Unknown]
  - Spondylolisthesis [Unknown]
  - Ligamentum flavum hypertrophy [Unknown]
